FAERS Safety Report 4345043-1 (Version None)
Quarter: 2004Q2

REPORT INFORMATION
  Report Type: 
  Country: None (occurrence: None)
  Receive Date: 20040420
  Receipt Date: 20040408
  Transmission Date: 20050107
  Serious: Yes (Hospitalization)
  Sender: FDA-Public Use
  Company Number: K200400536

PATIENT
  Age: 58 Year
  Sex: Male
  Weight: 82 kg

DRUGS (2)
  1. LORABID [Suspect]
     Indication: BRONCHITIS
     Dosage: 400 MG, BID
     Dates: start: 20031222, end: 20031227
  2. VOLTAREN DISPERS              (DICLOFENAC), 100 MG [Concomitant]

REACTIONS (4)
  - ANURIA [None]
  - DRUG ERUPTION [None]
  - HAEMODIALYSIS [None]
  - NEPHRITIS INTERSTITIAL [None]
